FAERS Safety Report 5550320-2 (Version None)
Quarter: 2007Q4

REPORT INFORMATION
  Report Type: 
  Country: None (occurrence: None)
  Receive Date: 20071212
  Receipt Date: 20070427
  Transmission Date: 20080405
  Serious: No
  Sender: FDA-Public Use
  Company Number: US-AMGEN-KDL222244

PATIENT
  Sex: Female

DRUGS (2)
  1. ENBREL [Suspect]
     Indication: ANKYLOSING SPONDYLITIS
     Route: 058
     Dates: start: 20060522
  2. SULFASALAZINE [Concomitant]
     Dates: start: 20060101

REACTIONS (2)
  - ARTHRITIS [None]
  - MUSCULOSKELETAL STIFFNESS [None]
